FAERS Safety Report 4316796-3 (Version None)
Quarter: 2004Q1

REPORT INFORMATION
  Report Type: 
  Country: None (occurrence: None)
  Receive Date: 20040308
  Receipt Date: 20031203
  Transmission Date: 20041129
  Serious: No
  Sender: FDA-Public Use
  Company Number: PHEH2003US11109

PATIENT
  Age: 81 Year
  Sex: Male

DRUGS (1)
  1. GLEEVEC [Suspect]
     Indication: GASTROINTESTINAL NEOPLASM

REACTIONS (7)
  - DECREASED APPETITE [None]
  - EYE HAEMORRHAGE [None]
  - EYE REDNESS [None]
  - MUSCLE CRAMP [None]
  - NAUSEA [None]
  - SWELLING FACE [None]
  - WEIGHT DECREASED [None]
